FAERS Safety Report 4415048-0 (Version None)
Quarter: 2004Q3

REPORT INFORMATION
  Report Type: 
  Country: None (occurrence: None)
  Receive Date: 20040730
  Receipt Date: 20040714
  Transmission Date: 20050211
  Serious: Yes (Hospitalization)
  Sender: FDA-Public Use
  Company Number: 185473

PATIENT
  Age: 57 Year
  Sex: Female
  Weight: 72.5755 kg

DRUGS (11)
  1. AVONEX [Suspect]
     Indication: MULTIPLE SCLEROSIS
     Dosage: 30 MCG QW IM
     Route: 030
     Dates: start: 20010319, end: 20030917
  2. AVONEX [Suspect]
     Indication: MULTIPLE SCLEROSIS
     Dosage: 30 MCG QW IM
     Route: 030
     Dates: start: 20030924
  3. DEMADEX [Concomitant]
  4. ACIPHEX [Concomitant]
  5. ERYTHROMYCIN [Concomitant]
  6. TENORMIN [Concomitant]
  7. NORVASC [Concomitant]
  8. CELEBREX [Concomitant]
  9. MIDAMOR [Concomitant]
  10. NORFLEX [Concomitant]
  11. XANAX [Concomitant]

REACTIONS (27)
  - ARTHRITIS [None]
  - ASTHMA [None]
  - BLOOD POTASSIUM DECREASED [None]
  - BRONCHITIS [None]
  - BRONCHOSPASM [None]
  - CARPAL TUNNEL SYNDROME [None]
  - CELLULITIS [None]
  - CEREBRAL ATROPHY [None]
  - CHOKING [None]
  - CORONARY ARTERY OCCLUSION [None]
  - FALL [None]
  - FASCIITIS [None]
  - HEART RATE INCREASED [None]
  - HYPERTENSION [None]
  - INTERVERTEBRAL DISC PROTRUSION [None]
  - MEMORY IMPAIRMENT [None]
  - MOBILITY DECREASED [None]
  - MULTIPLE SCLEROSIS RELAPSE [None]
  - MUSCLE ATROPHY [None]
  - OEDEMA PERIPHERAL [None]
  - PAIN [None]
  - PULMONARY EMBOLISM [None]
  - SLEEP APNOEA SYNDROME [None]
  - TENDONITIS [None]
  - THROMBOSIS [None]
  - TREMOR [None]
  - UPPER RESPIRATORY TRACT INFECTION [None]
